FAERS Safety Report 5063405-4 (Version None)
Quarter: 2006Q3

REPORT INFORMATION
  Report Type: 
  Country: None (occurrence: None)
  Receive Date: 20060727
  Receipt Date: 20060707
  Transmission Date: 20061208
  Serious: Yes (Other)
  Sender: FDA-Public Use
  Company Number: US-ROCHE-454883

PATIENT
  Age: 45 Year
  Sex: Male
  Weight: 91.6 kg

DRUGS (8)
  1. PEGASYS [Suspect]
     Route: 058
     Dates: start: 20060325, end: 20060419
  2. PEGASYS [Suspect]
     Route: 058
     Dates: start: 20060518, end: 20060630
  3. PEGASYS [Suspect]
     Route: 058
     Dates: end: 20060706
  4. RIBAVIRIN [Suspect]
     Dosage: 600 MG IN THE AM AND 600 MG IN THE PM.
     Route: 048
     Dates: start: 20060325, end: 20060419
  5. RIBAVIRIN [Suspect]
     Dosage: 600 MG IN THE AM AND 600 MG IN THE PM.
     Route: 048
     Dates: start: 20060518, end: 20060630
  6. RIBAVIRIN [Suspect]
     Dosage: 600 MG IN THE AM AND 600 MG IN THE PM.
     Route: 048
     Dates: end: 20060706
  7. XANAX [Concomitant]
     Route: 048
  8. PROCRIT [Concomitant]
     Dosage: DOSING AMOUNT AND FREQUENCY: 40000/WEEKLY.
     Route: 058
     Dates: start: 20060419

REACTIONS (3)
  - ANAEMIA [None]
  - NEUTROPHIL COUNT DECREASED [None]
  - PLATELET MORPHOLOGY ABNORMAL [None]
